FAERS Safety Report 9420174 (Version 1)
Quarter: 2013Q3

REPORT INFORMATION
  Report Type: Spontaneous
  Country: US (occurrence: None)
  Receive Date: 20130723
  Receipt Date: 20130723
  Transmission Date: 20140515
  Serious: Yes (Hospitalization)
  Sender: FDA-Public Use
  Company Number: None

PATIENT
  Age: 37 Year
  Sex: Male
  Weight: 83.4 kg

DRUGS (2)
  1. CYCLOBENZAPRINE [Suspect]
     Indication: PAIN
     Dates: start: 20130601, end: 20130612
  2. TRAMADOL [Suspect]
     Dates: start: 20130601, end: 20130612

REACTIONS (2)
  - Serotonin syndrome [None]
  - Dizziness [None]
